FAERS Safety Report 15320727 (Version 4)
Quarter: 2018Q4

REPORT INFORMATION
  Report Type: Spontaneous
  Country: US (occurrence: US)
  Receive Date: 20180827
  Receipt Date: 20181005
  Transmission Date: 20190204
  Serious: Yes (Hospitalization, Other)
  Sender: FDA-Public Use
  Company Number: US-ROCHE-2173875

PATIENT
  Age: 34 Year
  Sex: Female
  Weight: 78.09 kg

DRUGS (2)
  1. FLUOXETINE [Concomitant]
     Active Substance: FLUOXETINE HYDROCHLORIDE
     Route: 065
  2. OCREVUS [Suspect]
     Active Substance: OCRELIZUMAB
     Indication: MULTIPLE SCLEROSIS
     Route: 042
     Dates: start: 20180608, end: 20180622

REACTIONS (7)
  - West Nile viral infection [Recovered/Resolved]
  - Pyrexia [Unknown]
  - Headache [Unknown]
  - Encephalopathy [Recovering/Resolving]
  - Meningitis herpes [Unknown]
  - Facial paralysis [Recovering/Resolving]
  - Confusional state [Unknown]

NARRATIVE: CASE EVENT DATE: 20180803
